FAERS Safety Report 19303304 (Version 5)
Quarter: 2022Q1

REPORT INFORMATION
  Report Type: Report from Study
  Country: AR (occurrence: AR)
  Receive Date: 20210525
  Receipt Date: 20220126
  Transmission Date: 20220423
  Serious: Yes (Other)
  Sender: FDA-Public Use
  Company Number: NVSC2020AR246897

PATIENT
  Age: 77 Year
  Sex: Female

DRUGS (2)
  1. KISQALI [Suspect]
     Active Substance: RIBOCICLIB
     Indication: Breast cancer metastatic
     Dosage: 600 MG, QD
     Route: 048
     Dates: start: 20181217
  2. FEMARA [Suspect]
     Active Substance: LETROZOLE
     Indication: Breast cancer metastatic
     Dosage: UNK
     Route: 065
     Dates: start: 20181217

REACTIONS (15)
  - Mouth haemorrhage [Unknown]
  - Oral pain [Unknown]
  - Decreased immune responsiveness [Unknown]
  - Pain in extremity [Unknown]
  - Rash macular [Unknown]
  - White blood cell count decreased [Unknown]
  - Blister [Unknown]
  - Crying [Unknown]
  - Depression [Unknown]
  - Malaise [Unknown]
  - Oral herpes [Unknown]
  - Stomatitis [Unknown]
  - Platelet count decreased [Unknown]
  - Rash [Unknown]
  - Off label use [Unknown]

NARRATIVE: CASE EVENT DATE: 20210303
